FAERS Safety Report 14324153 (Version 1)
Quarter: 2017Q4

REPORT INFORMATION
  Report Type: Spontaneous
  Country: BG (occurrence: BG)
  Receive Date: 20171226
  Receipt Date: 20171226
  Transmission Date: 20180321
  Serious: Yes (Hospitalization, Other)
  Sender: FDA-Public Use
  Company Number: PHHY2017BG192558

PATIENT
  Age: 68 Year
  Sex: Female

DRUGS (1)
  1. AMPICILLIN [Suspect]
     Active Substance: AMPICILLIN
     Indication: PRODUCT USED FOR UNKNOWN INDICATION
     Route: 065

REACTIONS (25)
  - Dermatitis bullous [Recovered/Resolved]
  - Arthralgia [Recovered/Resolved]
  - Mouth ulceration [Recovered/Resolved]
  - Myalgia [Recovered/Resolved]
  - Fatigue [Recovered/Resolved]
  - Pruritus [Recovered/Resolved]
  - Blister [Recovered/Resolved]
  - Rash [Recovered/Resolved]
  - Ulcer [Recovered/Resolved]
  - Skin exfoliation [Recovered/Resolved]
  - Oropharyngeal pain [Recovered/Resolved]
  - Pyrexia [Recovered/Resolved]
  - Skin plaque [Recovered/Resolved]
  - Oral mucosal erythema [Recovered/Resolved]
  - Lip haemorrhage [Recovered/Resolved]
  - Condition aggravated [Recovered/Resolved]
  - Conjunctivitis [Recovered/Resolved]
  - Erythema [Recovered/Resolved]
  - Genital ulceration [Recovered/Resolved]
  - Dysphagia [Recovered/Resolved]
  - Rash maculo-papular [Recovered/Resolved]
  - Decreased appetite [Recovered/Resolved]
  - Lip erosion [Recovered/Resolved]
  - Discomfort [Recovered/Resolved]
  - Toxic epidermal necrolysis [Recovered/Resolved]
